FAERS Safety Report 12551720 (Version 2)
Quarter: 2017Q2

REPORT INFORMATION
  Report Type: Spontaneous
  Country: US (occurrence: US)
  Receive Date: 20160713
  Receipt Date: 20170620
  Transmission Date: 20170830
  Serious: No
  Sender: FDA-Public Use
  Company Number: US-TEVA-586052USA

PATIENT
  Sex: Male
  Weight: 33 kg

DRUGS (5)
  1. QUILLIVANT XR [Interacting]
     Active Substance: METHYLPHENIDATE HYDROCHLORIDE
     Indication: ATTENTION DEFICIT/HYPERACTIVITY DISORDER
     Dosage: ONCE IN AM
     Route: 048
     Dates: start: 20150507, end: 20150527
  2. DEPAKOTE [Suspect]
     Active Substance: DIVALPROEX SODIUM
     Indication: AFFECTIVE DISORDER
  3. CLONIDINE. [Suspect]
     Active Substance: CLONIDINE
     Indication: DEPRESSION
     Dosage: ONCE AT BED TIME
     Route: 065
  4. RISPERIDONE. [Suspect]
     Active Substance: RISPERIDONE
     Indication: DEPRESSION
     Dosage: AT 4 O^CLOCK
     Route: 065
  5. DEPAKOTE [Suspect]
     Active Substance: DIVALPROEX SODIUM
     Indication: DEPRESSION
     Dosage: ONE IN THE MORNING AT 8 AND AT NOON
     Route: 065

REACTIONS (3)
  - Abdominal pain upper [Recovered/Resolved]
  - Irritability [Not Recovered/Not Resolved]
  - Drug interaction [Unknown]
